FAERS Safety Report 9441110 (Version 2)
Quarter: 2013Q3

REPORT INFORMATION
  Report Type: Report from Study
  Country: US (occurrence: US)
  Receive Date: 20130805
  Receipt Date: 20130812
  Transmission Date: 20140515
  Serious: Yes (Death, Life-Threatening)
  Sender: FDA-Public Use
  Company Number: US-GLAXOSMITHKLINE-B0895491C

PATIENT
  Age: 69 Year
  Sex: Male
  Weight: 95.4 kg

DRUGS (10)
  1. FLUTICASONE FUROATE [Suspect]
     Indication: CHRONIC OBSTRUCTIVE PULMONARY DISEASE
  2. METFORMIN [Concomitant]
     Indication: TYPE 2 DIABETES MELLITUS
     Dosage: 500MG FOUR TIMES PER DAY
     Route: 048
     Dates: start: 20110104
  3. ALPRAZOLAM [Concomitant]
     Indication: ANXIETY
     Dosage: 1MG FOUR TIMES PER DAY
     Route: 048
     Dates: start: 201211
  4. ALBUTEROL SULFATE [Concomitant]
     Indication: CHRONIC OBSTRUCTIVE PULMONARY DISEASE
     Route: 055
     Dates: start: 1993
  5. SIMVASTATIN [Concomitant]
     Indication: HYPERLIPIDAEMIA
     Dosage: 40MG FOUR TIMES PER DAY
     Route: 048
     Dates: start: 20110104
  6. WARFARIN [Concomitant]
     Indication: PULMONARY EMBOLISM
     Dosage: 7.5MG FOUR TIMES PER DAY
     Route: 048
     Dates: start: 201301
  7. PERCOCET [Concomitant]
     Indication: BACK PAIN
     Route: 048
     Dates: start: 201211
  8. LISINOPRIL [Concomitant]
     Indication: HYPERTENSION
     Dosage: 20MG FOUR TIMES PER DAY
     Route: 048
     Dates: start: 20070312
  9. DOXAZOSIN MESYLATE [Concomitant]
     Indication: BENIGN PROSTATIC HYPERPLASIA
     Dosage: 4MG FOUR TIMES PER DAY
     Route: 048
     Dates: start: 20051228
  10. PERCOCET [Concomitant]
     Indication: BACK PAIN
     Route: 048
     Dates: start: 201211

REACTIONS (1)
  - Cardiopulmonary failure [Fatal]
